FAERS Safety Report 9062275 (Version 4)
Quarter: 2013Q2

REPORT INFORMATION
  Report Type: Report from Study
  Country: US (occurrence: US)
  Receive Date: 20130127
  Receipt Date: 20130514
  Transmission Date: 20140414
  Serious: Yes (Hospitalization)
  Sender: FDA-Public Use
  Company Number: US-009507513-1301USA009198

PATIENT
  Age: 63 Year
  Sex: Male
  Weight: 102 kg

DRUGS (17)
  1. VORINOSTAT [Suspect]
     Indication: DIFFUSE LARGE B-CELL LYMPHOMA
     Dosage: 400 MG, QD ON DAYS 1-5
     Route: 048
     Dates: start: 20121226, end: 20121230
  2. VORINOSTAT [Suspect]
     Dosage: 400 MG, QD ON DAYS 1-5
     Route: 048
     Dates: start: 20130227, end: 20130303
  3. VORINOSTAT [Suspect]
     Dosage: 400 MG, QD ON DAYS 1-5
     Route: 048
     Dates: start: 20130320, end: 20130324
  4. RITUXIMAB [Suspect]
     Indication: DIFFUSE LARGE B-CELL LYMPHOMA
     Dosage: 375 MG/M2, IV INFUSION ON DAY 3
     Route: 042
     Dates: start: 20121228, end: 20121228
  5. RITUXIMAB [Suspect]
     Dosage: 375 MG/M2, IV INFUSION ON DAY 3
     Route: 042
     Dates: start: 20130301, end: 20130301
  6. RITUXIMAB [Suspect]
     Dosage: 375 MG/M2, IV INFUSION ON DAY 3
     Route: 042
     Dates: start: 20130322, end: 20130322
  7. CYCLOPHOSPHAMIDE [Suspect]
     Indication: DIFFUSE LARGE B-CELL LYMPHOMA
     Dosage: 750 MG/M2, IV OVER 30-60 MINUTES ON DAY 3
     Route: 042
     Dates: start: 20121228, end: 20121228
  8. CYCLOPHOSPHAMIDE [Suspect]
     Dosage: 750 MG/M2, IV OVER 30-60 MINUTES ON DAY 3
     Route: 042
     Dates: start: 20130301, end: 20130301
  9. CYCLOPHOSPHAMIDE [Suspect]
     Dosage: 750 MG/M2, IV OVER 30-60 MINUTES ON DAY 3
     Route: 042
     Dates: start: 20130322, end: 20130322
  10. DOXORUBICIN [Suspect]
     Indication: DIFFUSE LARGE B-CELL LYMPHOMA
     Dosage: 50 MG/M2, IVP ON DAY 3
     Route: 042
     Dates: start: 20121228, end: 20121228
  11. DOXORUBICIN [Suspect]
     Dosage: 50 MG/M2, IVP ON DAY 3
     Route: 042
     Dates: start: 20130301, end: 20130301
  12. DOXORUBICIN [Suspect]
     Dosage: 50 MG/M2, IVP ON DAY 3
     Route: 042
     Dates: start: 20130322, end: 20130322
  13. VINCRISTINE [Suspect]
     Indication: DIFFUSE LARGE B-CELL LYMPHOMA
     Dosage: 1.4 MG/M2, IVP ON DAY 3
     Route: 042
     Dates: start: 20121228, end: 20121228
  14. VINCRISTINE [Suspect]
     Dosage: 1.4 MG/M2, IVP ON DAY 3
     Route: 042
     Dates: start: 20130301, end: 20130301
  15. VINCRISTINE [Suspect]
     Dosage: 1.4 MG/M2, IVP ON DAY 3
     Route: 042
     Dates: start: 20130322, end: 20130322
  16. PREDNISONE [Suspect]
     Indication: DIFFUSE LARGE B-CELL LYMPHOMA
     Dosage: 100 MG, QD ON DAYS 3-7
     Route: 048
     Dates: start: 20121228, end: 20130101
  17. PREDNISONE [Suspect]
     Dosage: 50 MG D5, 25 MG D6 AND D7
     Route: 048
     Dates: start: 20130301, end: 20130305

REACTIONS (7)
  - Febrile neutropenia [Recovered/Resolved]
  - Pneumonitis [Recovered/Resolved with Sequelae]
  - Diverticulitis [Recovered/Resolved with Sequelae]
  - Platelet count decreased [Recovering/Resolving]
  - Anaemia [Recovering/Resolving]
  - Febrile neutropenia [Recovering/Resolving]
  - Clostridium difficile infection [Recovering/Resolving]
